FAERS Safety Report 5771710-9 (Version None)
Quarter: 2008Q2

REPORT INFORMATION
  Report Type: 
  Country: None (occurrence: None)
  Receive Date: 20080611
  Receipt Date: 20080603
  Transmission Date: 20081010
  Serious: Yes (Hospitalization)
  Sender: FDA-Public Use
  Company Number: DSA_31911_2008

PATIENT
  Sex: Female

DRUGS (5)
  1. LORAZEPAM [Suspect]
     Dosage: (5 MG 1X, ORAL)
     Route: 048
     Dates: start: 20080521, end: 20080521
  2. LORAZEPAM [Suspect]
     Dosage: (12 MG 1X, SUBLINGUAL)
     Route: 060
     Dates: start: 20080521, end: 20080521
  3. CITALOPRAM HYDROBROMIDE [Suspect]
     Dosage: (80 MG 1X, ORAL)
     Route: 048
     Dates: start: 20080521, end: 20080521
  4. DOMINAL /00018902/ (DOMINAL - PROTHIPENDYL HYDROCHLORIDE) 80 MG (NOT S [Suspect]
     Dosage: (960 MG 1X, ORAL)
     Route: 048
     Dates: start: 20080521, end: 20080521
  5. ZOPICLONE (ZOPICLONE) 7.5 MG [Suspect]
     Dosage: (22.5 MG 1X, ORAL)
     Route: 048
     Dates: start: 20080521, end: 20080521

REACTIONS (6)
  - BLOOD PRESSURE SYSTOLIC DECREASED [None]
  - CIRCULATORY COLLAPSE [None]
  - FATIGUE [None]
  - HYPOTENSION [None]
  - MULTIPLE DRUG OVERDOSE INTENTIONAL [None]
  - SUICIDE ATTEMPT [None]
